FAERS Safety Report 6936508-4 (Version None)
Quarter: 2010Q3

REPORT INFORMATION
  Report Type: 
  Country: None (occurrence: None)
  Receive Date: 20100823
  Receipt Date: 20100816
  Transmission Date: 20110219
  Serious: Yes (Other)
  Sender: FDA-Public Use
  Company Number: US-PFIZER INC-2010103560

PATIENT
  Sex: Female
  Weight: 82 kg

DRUGS (2)
  1. XALATAN [Suspect]
     Indication: GLAUCOMA
     Dosage: TWO DROPS IN EACH EYE IN THE EVENING
     Route: 047
     Dates: start: 20100101
  2. LORTAB [Concomitant]
     Dosage: UNK

REACTIONS (5)
  - EXPIRED DRUG ADMINISTERED [None]
  - EYE IRRITATION [None]
  - EYE PAIN [None]
  - EYE PRURITUS [None]
  - VISION BLURRED [None]
